FAERS Safety Report 20700921 (Version 1)
Quarter: 2022Q2

REPORT INFORMATION
  Report Type: Spontaneous
  Country: US (occurrence: None)
  Receive Date: 20220411
  Receipt Date: 20220411
  Transmission Date: 20220721
  Serious: Yes (Other)
  Sender: FDA-Public Use
  Company Number: None

PATIENT
  Age: 63 Year
  Sex: Male
  Weight: 125.1 kg

DRUGS (3)
  1. PAXLOVID [Suspect]
     Active Substance: NIRMATRELVIR\RITONAVIR
     Indication: COVID-19
     Dosage: OTHER QUANTITY : 3 TABLET(S);?FREQUENCY : TWICE A DAY;?
     Route: 048
     Dates: start: 20220408, end: 20220411
  2. CITALOPRAM [Concomitant]
     Active Substance: CITALOPRAM HYDROBROMIDE
  3. OZEMPIC [Concomitant]
     Dates: end: 20220404

REACTIONS (7)
  - Palpitations [None]
  - Anxiety [None]
  - Hypertension [None]
  - Dyspnoea [None]
  - Cardiac disorder [None]
  - Confusional state [None]
  - Adverse drug reaction [None]

NARRATIVE: CASE EVENT DATE: 20220411
